FAERS Safety Report 7935069-0 (Version None)
Quarter: 2011Q4

REPORT INFORMATION
  Report Type: 
  Country: None (occurrence: None)
  Receive Date: 20111117
  Receipt Date: 20111103
  Transmission Date: 20120403
  Serious: Yes (Death, Life-Threatening, Hospitalization, Other)
  Sender: FDA-Public Use
  Company Number: 2011MA016042

PATIENT
  Sex: Female
  Weight: 57.1532 kg

DRUGS (11)
  1. METOPROLOL TARTRATE [Concomitant]
  2. COUMADIN [Concomitant]
  3. DICLOFENAC SODIUM [Concomitant]
  4. ISOSORBIDE DINITRATE [Concomitant]
  5. DIGOXIN [Suspect]
     Indication: ATRIAL FIBRILLATION
     Dosage: 0.125 MG;QD;PO
     Route: 048
     Dates: start: 20061201, end: 20080114
  6. CHLORATHALIDONE [Concomitant]
  7. POTASSIUM ACETATE [Concomitant]
  8. MECLIZINE [Concomitant]
  9. TRAZODONE HCL [Concomitant]
  10. LORTAB [Concomitant]
  11. CORDARONE [Concomitant]

REACTIONS (33)
  - ELECTROCARDIOGRAM CHANGE [None]
  - URINARY TRACT INFECTION [None]
  - CORONARY ARTERY BYPASS [None]
  - RESPIRATORY FAILURE [None]
  - WEIGHT DECREASED [None]
  - NAUSEA [None]
  - ASPIRATION [None]
  - CORONARY ARTERY STENOSIS [None]
  - EMOTIONAL DISORDER [None]
  - FATIGUE [None]
  - CORONARY ARTERY DISEASE [None]
  - ANAEMIA [None]
  - RESPIRATORY ARREST [None]
  - NODAL RHYTHM [None]
  - AORTIC ARTERIOSCLEROSIS [None]
  - DECREASED APPETITE [None]
  - DIARRHOEA [None]
  - CARDIAC FAILURE CONGESTIVE [None]
  - ATRIAL FIBRILLATION [None]
  - MULTIPLE INJURIES [None]
  - VOMITING [None]
  - MENTAL DISORDER [None]
  - ANXIETY [None]
  - MITRAL VALVE INCOMPETENCE [None]
  - PNEUMONITIS [None]
  - CAROTID ARTERY STENOSIS [None]
  - BLOOD PRESSURE DECREASED [None]
  - SYNCOPE [None]
  - ASTHENIA [None]
  - ECONOMIC PROBLEM [None]
  - FALL [None]
  - VERTIGO [None]
  - ENDARTERECTOMY [None]
